FAERS Safety Report 8863756 (Version 1)
Quarter: 2012Q4

REPORT INFORMATION
  Report Type: 
  Country: US (occurrence: US)
  Receive Date: 20121024
  Receipt Date: 20121024
  Transmission Date: 20130627
  Serious: No
  Sender: FDA-Public Use
  Company Number: US-AMGEN-USASP2011063841

PATIENT
  Age: 59 Year
  Sex: Female

DRUGS (1)
  1. ENBREL [Suspect]
     Indication: RHEUMATOID ARTHRITIS
     Dosage: 50 mg, qwk
     Dates: start: 20110515, end: 201109

REACTIONS (5)
  - Pigmentation disorder [Unknown]
  - Laboratory test abnormal [Unknown]
  - Arthralgia [Unknown]
  - Injection site erythema [Unknown]
  - Injection site reaction [Recovered/Resolved]
